FAERS Safety Report 18281394 (Version 1)
Quarter: 2020Q3

REPORT INFORMATION
  Report Type: Spontaneous
  Country: FR (occurrence: FR)
  Receive Date: 20200918
  Receipt Date: 20200918
  Transmission Date: 20201103
  Serious: Yes (Hospitalization)
  Sender: FDA-Public Use
  Company Number: FR-TEVA-2020-FR-1828250

PATIENT
  Age: 67 Year
  Sex: Male

DRUGS (3)
  1. ALLOPURINOL. [Suspect]
     Active Substance: ALLOPURINOL
     Indication: GOUT
     Route: 048
  2. DEPAKINE 200 MG/ML, SOLUTION BUVABLE [Suspect]
     Active Substance: VALPROATE SODIUM
     Indication: EPILEPSY
     Route: 048
  3. LOXAPAC [Suspect]
     Active Substance: LOXAPINE
     Indication: MENTAL DISORDER
     Route: 048

REACTIONS (4)
  - Miosis [Unknown]
  - Hypertonia [Unknown]
  - Bradypnoea [Unknown]
  - Coma [Unknown]

NARRATIVE: CASE EVENT DATE: 20200208
